FAERS Safety Report 21689441 (Version 5)
Quarter: 2025Q1

REPORT INFORMATION
  Report Type: Report from Study
  Country: US (occurrence: US)
  Receive Date: 20221206
  Receipt Date: 20250226
  Transmission Date: 20250408
  Serious: Yes (Hospitalization, Other)
  Sender: TAKEDA
  Company Number: US-TAKEDA-US201912465

PATIENT
  Age: 42 Year
  Sex: Female

DRUGS (5)
  1. TEDUGLUTIDE [Suspect]
     Active Substance: TEDUGLUTIDE
     Indication: Short-bowel syndrome
     Dosage: UNK UNK, QD
     Dates: start: 20161024
  2. TEDUGLUTIDE [Suspect]
     Active Substance: TEDUGLUTIDE
     Dosage: 0.13 MILLILITER, QD
     Dates: start: 20190403
  3. TEDUGLUTIDE [Suspect]
     Active Substance: TEDUGLUTIDE
     Dosage: 1.6 MILLIGRAM, QD
     Dates: start: 20200212
  4. TEDUGLUTIDE [Suspect]
     Active Substance: TEDUGLUTIDE
     Dosage: 1.6 MILLIGRAM, QD
     Dates: start: 20201202
  5. TEDUGLUTIDE [Suspect]
     Active Substance: TEDUGLUTIDE
     Dosage: 1.3 MILLIGRAM, QD
     Dates: end: 20240515

REACTIONS (10)
  - Pneumonia [Not Recovered/Not Resolved]
  - Blood urea increased [Unknown]
  - Blood creatinine increased [Unknown]
  - Dehydration [Unknown]
  - Sepsis [Not Recovered/Not Resolved]
  - Vomiting [Unknown]
  - Abdominal pain [Unknown]
  - Product availability issue [Unknown]
  - Product dose omission issue [Unknown]
  - Inappropriate schedule of product administration [Unknown]

NARRATIVE: CASE EVENT DATE: 20190407
